FAERS Safety Report 7548674-0 (Version None)
Quarter: 2011Q2

REPORT INFORMATION
  Report Type: 
  Country: None (occurrence: None)
  Receive Date: 20110615
  Receipt Date: 20110613
  Transmission Date: 20111010
  Serious: Yes (Death, Other)
  Sender: FDA-Public Use
  Company Number: US-AMGEN-USASP2011019397

PATIENT
  Age: 75 Year
  Sex: Female
  Weight: 56 kg

DRUGS (3)
  1. NPLATE [Suspect]
     Dates: start: 20110221
  2. NPLATE [Suspect]
     Indication: PRODUCT USED FOR UNKNOWN INDICATION
     Dosage: 50 A?G, UNK
     Dates: start: 20110221, end: 20110314
  3. PLATELETS [Concomitant]

REACTIONS (2)
  - CHRONIC MYELOID LEUKAEMIA [None]
  - DRUG INEFFECTIVE [None]
